FAERS Safety Report 12847541 (Version 1)
Quarter: 2016Q4

REPORT INFORMATION
  Report Type: Report from Study
  Country: TH (occurrence: TH)
  Receive Date: 20161014
  Receipt Date: 20161014
  Transmission Date: 20170207
  Serious: Yes (Other)
  Sender: FDA-Public Use
  Company Number: TH-ASTRAZENECA-2016SF07608

PATIENT
  Age: 51 Year

DRUGS (1)
  1. OLAPARIB [Suspect]
     Active Substance: OLAPARIB
     Route: 048
     Dates: start: 20160218, end: 20160727

REACTIONS (2)
  - Metastases to liver [Unknown]
  - Disease progression [Unknown]

NARRATIVE: CASE EVENT DATE: 20160726
